FAERS Safety Report 26037247 (Version 1)
Quarter: 2025Q4

REPORT INFORMATION
  Report Type: Spontaneous
  Country: US (occurrence: US)
  Receive Date: 20251112
  Receipt Date: 20251112
  Transmission Date: 20260117
  Serious: No
  Sender: AMGEN
  Company Number: US-AMGEN-USASP2025130912

PATIENT
  Age: 54 Year
  Sex: Female

DRUGS (4)
  1. MVASI [Suspect]
     Active Substance: BEVACIZUMAB-AWWB
     Indication: Renal cancer
     Dosage: UNK, DOSE ORDERED: 500 MG (DOSE REQUESTED: 1 X 400 MG VIAL AND 1 X 100 MG VIAL OF MVASI)
     Route: 040
     Dates: start: 2021
  2. MVASI [Suspect]
     Active Substance: BEVACIZUMAB-AWWB
     Dosage: UNK, DOSE ORDERED: 500 MG (DOSE REQUESTED: 1 X 400 MG VIAL AND 1 X 100 MG VIAL OF MVASI)
     Route: 040
  3. MVASI [Suspect]
     Active Substance: BEVACIZUMAB-AWWB
     Dosage: UNK, (500 MG USING 1 VIAL OF MVASI 400 MG AND 1 VIAL OF MVASI 100 MG)
     Route: 040
  4. MVASI [Suspect]
     Active Substance: BEVACIZUMAB-AWWB
     Dosage: UNK, (500 MG USING 1 VIAL OF MVASI 400 MG AND 1 VIAL OF MVASI 100 MG)
     Route: 040

REACTIONS (4)
  - Presyncope [Unknown]
  - Blood glucose increased [Unknown]
  - Dizziness [Unknown]
  - Off label use [Unknown]

NARRATIVE: CASE EVENT DATE: 20210101
